FAERS Safety Report 9186360 (Version 3)
Quarter: 2013Q2

REPORT INFORMATION
  Report Type: Spontaneous
  Country: US (occurrence: None)
  Receive Date: 20130321
  Receipt Date: 20130513
  Transmission Date: 20140414
  Serious: Yes (Hospitalization)
  Sender: FDA-Public Use
  Company Number: 2013US001214

PATIENT
  Age: 54 Year
  Sex: Male
  Weight: 59 kg

DRUGS (3)
  1. ICLUSIG [Suspect]
     Indication: ACUTE LYMPHOCYTIC LEUKAEMIA
     Route: 048
     Dates: start: 201301, end: 20130214
  2. METHOTREXATE (METHOTREXATE) [Concomitant]
  3. QUESTRAN (COLESTYRAMINE) [Concomitant]

REACTIONS (7)
  - Fatigue [None]
  - Diarrhoea [None]
  - Bacterial infection [None]
  - Muscular weakness [None]
  - Muscular weakness [None]
  - Mobility decreased [None]
  - Fatigue [None]
